FAERS Safety Report 15953195 (Version 1)
Quarter: 2019Q1

REPORT INFORMATION
  Report Type: Spontaneous
  Country: US (occurrence: US)
  Receive Date: 20190211
  Receipt Date: 20190211
  Transmission Date: 20190417
  Serious: No
  Sender: FDA-Public Use
  Company Number: US-PFIZER INC-2019062413

PATIENT
  Age: 48 Year
  Sex: Female

DRUGS (2)
  1. GENOTROPIN MQ [Suspect]
     Active Substance: SOMATROPIN
     Indication: THYROID MASS
  2. GENOTROPIN MQ [Suspect]
     Active Substance: SOMATROPIN
     Indication: CRANIOPHARYNGIOMA
     Dosage: 0.8 MG, DAILY

REACTIONS (9)
  - Product use in unapproved indication [Unknown]
  - Fatigue [Unknown]
  - Low density lipoprotein increased [Unknown]
  - Protein total decreased [Unknown]
  - Blood albumin decreased [Unknown]
  - Sleep disorder [Unknown]
  - Blood prolactin increased [Unknown]
  - Tri-iodothyronine increased [Unknown]
  - High density lipoprotein decreased [Unknown]
